FAERS Safety Report 4491637-2 (Version None)
Quarter: 2004Q4

REPORT INFORMATION
  Report Type: 
  Country: None (occurrence: None)
  Receive Date: 20041101
  Receipt Date: 20041019
  Transmission Date: 20050328
  Serious: Yes (Other)
  Sender: FDA-Public Use
  Company Number: 206465

PATIENT
  Age: 70 Year
  Sex: Female
  Weight: 70.3075 kg

DRUGS (1)
  1. AVONEX [Suspect]
     Indication: MULTIPLE SCLEROSIS
     Dates: start: 20030101

REACTIONS (19)
  - ANOREXIA [None]
  - ARTHRALGIA [None]
  - ASTHENIA [None]
  - CHEST WALL MASS [None]
  - CHILLS [None]
  - CONSTIPATION [None]
  - EMPHYSEMA [None]
  - FALL [None]
  - FATIGUE [None]
  - INFLUENZA LIKE ILLNESS [None]
  - LOWER RESPIRATORY TRACT INFECTION [None]
  - NAUSEA [None]
  - OXYGEN SATURATION DECREASED [None]
  - PAIN [None]
  - SINUSITIS [None]
  - TREMOR [None]
  - URINARY RETENTION [None]
  - URINARY TRACT INFECTION [None]
  - WEIGHT DECREASED [None]
